FAERS Safety Report 6631851-0 (Version None)
Quarter: 2010Q1

REPORT INFORMATION
  Report Type: 
  Country: None (occurrence: None)
  Receive Date: 20100312
  Receipt Date: 20100302
  Transmission Date: 20100710
  Serious: Yes (Other)
  Sender: FDA-Public Use
  Company Number: IE-ROCHE-688513

PATIENT
  Sex: Female

DRUGS (3)
  1. CELLCEPT [Suspect]
     Route: 048
     Dates: start: 20080501, end: 20090801
  2. PREDNISOLONE [Concomitant]
     Dates: start: 20080101
  3. METHOTREXATE [Concomitant]
     Dates: start: 20080101

REACTIONS (6)
  - DISTURBANCE IN ATTENTION [None]
  - DIZZINESS [None]
  - DYSPHONIA [None]
  - HALLUCINATION [None]
  - HEADACHE [None]
  - SPEECH DISORDER [None]
